FAERS Safety Report 12603039 (Version 2)
Quarter: 2016Q4

REPORT INFORMATION
  Report Type: Report from Study
  Country: US (occurrence: US)
  Receive Date: 20160728
  Receipt Date: 20161031
  Transmission Date: 20170207
  Serious: Yes (Death, Hospitalization)
  Sender: FDA-Public Use
  Company Number: US-BAYER-2016-012951

PATIENT
  Age: 57 Year
  Sex: Male

DRUGS (2)
  1. ADEMPAS [Suspect]
     Active Substance: RIOCIGUAT
     Indication: PULMONARY ARTERIAL HYPERTENSION
     Dosage: 1 MG, TID
     Route: 048
     Dates: start: 20151230, end: 20160119
  2. ADEMPAS [Suspect]
     Active Substance: RIOCIGUAT
     Indication: PULMONARY ARTERIAL HYPERTENSION
     Dosage: 1.5 MG, TID
     Route: 048
     Dates: start: 2016

REACTIONS (6)
  - Fluid overload [Recovered/Resolved]
  - Fluid retention [Recovered/Resolved]
  - Scrotal swelling [None]
  - Dyspnoea [None]
  - Multiple organ dysfunction syndrome [Fatal]
  - Peripheral swelling [None]

NARRATIVE: CASE EVENT DATE: 20160116
